FAERS Safety Report 23341415 (Version 3)
Quarter: 2024Q4

REPORT INFORMATION
  Report Type: Report from Study
  Country: DE (occurrence: DE)
  Receive Date: 20231227
  Receipt Date: 20241026
  Transmission Date: 20250114
  Serious: Yes (Other)
  Sender: ROCHE
  Company Number: DE-ROCHE-2463620

PATIENT
  Age: 59 Year
  Sex: Female

DRUGS (4)
  1. OCREVUS [Suspect]
     Active Substance: OCRELIZUMAB
     Indication: Primary progressive multiple sclerosis
     Dosage: FREQUENCY 201 DAYS
     Route: 042
     Dates: start: 20181220
  2. DALFAMPRIDINE [Suspect]
     Active Substance: DALFAMPRIDINE
     Indication: Product used for unknown indication
     Route: 065
  3. CANDESARTAN [Concomitant]
     Active Substance: CANDESARTAN
  4. MIRTAZAPINE [Concomitant]
     Active Substance: MIRTAZAPINE

REACTIONS (10)
  - Gait disturbance [Recovering/Resolving]
  - Mental impairment [Recovered/Resolved]
  - Suicidal ideation [Recovered/Resolved]
  - Musculoskeletal stiffness [Recovered/Resolved]
  - Diabetes mellitus [Unknown]
  - Mood swings [Recovered/Resolved]
  - COVID-19 [Recovered/Resolved]
  - Bronchitis chronic [Not Recovered/Not Resolved]
  - Nasopharyngitis [Recovered/Resolved]
  - Asthenia [Recovered/Resolved]

NARRATIVE: CASE EVENT DATE: 20181220
